FAERS Safety Report 7184256-0 (Version None)
Quarter: 2010Q4

REPORT INFORMATION
  Report Type: 
  Country: None (occurrence: None)
  Receive Date: 20101123
  Receipt Date: 20100803
  Transmission Date: 20110411
  Serious: No
  Sender: FDA-Public Use
  Company Number: 014536

PATIENT
  Sex: Female

DRUGS (1)
  1. CIMZIA [Suspect]
     Dosage: (SUBCUTANEOUS)
     Route: 058
     Dates: start: 20100428

REACTIONS (7)
  - ABDOMINAL DISTENSION [None]
  - ACQUIRED OESOPHAGEAL WEB [None]
  - ASTHENIA [None]
  - BLOOD CHOLESTEROL INCREASED [None]
  - GLOSSODYNIA [None]
  - HYPOAESTHESIA ORAL [None]
  - ORAL FUNGAL INFECTION [None]
